FAERS Safety Report 25871879 (Version 2)
Quarter: 2025Q4

REPORT INFORMATION
  Report Type: Spontaneous
  Country: TW (occurrence: TW)
  Receive Date: 20251001
  Receipt Date: 20251017
  Transmission Date: 20260118
  Serious: Yes (Life-Threatening, Hospitalization)
  Sender: TEVA
  Company Number: TW-TEVA-VS-3376628

PATIENT
  Age: 13 Month
  Sex: Female
  Weight: 5.8 kg

DRUGS (5)
  1. FENTANYL [Suspect]
     Active Substance: FENTANYL
     Indication: Induction of anaesthesia
     Route: 065
  2. KETAMINE [Suspect]
     Active Substance: KETAMINE
     Indication: Induction of anaesthesia
     Route: 065
  3. SEVOFLURANE [Suspect]
     Active Substance: SEVOFLURANE
     Indication: Anaesthesia
     Route: 065
  4. LIDOCAINE [Suspect]
     Active Substance: LIDOCAINE
     Indication: Induction of anaesthesia
     Route: 065
  5. ATRACURIUM BESYLATE [Suspect]
     Active Substance: ATRACURIUM BESYLATE
     Indication: Induction of anaesthesia
     Route: 065

REACTIONS (1)
  - Hyperthermia malignant [Recovering/Resolving]
